FAERS Safety Report 9675963 (Version 2)
Quarter: 2013Q4

REPORT INFORMATION
  Report Type: Spontaneous
  Country: JP (occurrence: JP)
  Receive Date: 20131107
  Receipt Date: 20131126
  Transmission Date: 20140711
  Serious: Yes (Hospitalization)
  Sender: FDA-Public Use
  Company Number: JP-B.I. PHARMACEUTICALS,INC./RIDGEFIELD-2013-BI-35415NB

PATIENT
  Age: 92 Year
  Sex: Female
  Weight: 33 kg

DRUGS (8)
  1. TRAJENTA [Suspect]
     Indication: TYPE 2 DIABETES MELLITUS
     Dosage: 5 MG
     Route: 048
     Dates: start: 20130723, end: 20131031
  2. MICAMLO / TELMISARTAN_AMLODIPINE BESILATE COMBINED DRUG [Concomitant]
     Indication: HYPERTENSION
     Dosage: DAILY DOSE: 1 DF
     Route: 048
     Dates: start: 20130319
  3. LOXOPROFEN NA / LOXOPROFEN SODIUM HYDRATE [Concomitant]
     Indication: BACK PAIN
     Dosage: DAILY DOSE: 1 DF
     Route: 048
     Dates: start: 20070409
  4. TAKEPRON / LANSOPRAZOLE [Concomitant]
     Indication: GASTRODUODENAL ULCER
     Dosage: 15 MG
     Route: 048
     Dates: start: 20130330
  5. BAYCARON / MEFRUSIDE [Concomitant]
     Indication: CARDIAC FAILURE CHRONIC
     Dosage: 25 MG
     Route: 048
     Dates: start: 20130330
  6. FERROSTEC / SODIUM FERROUS CITRATE [Concomitant]
     Indication: IRON DEFICIENCY ANAEMIA
     Dosage: 50 MG
     Route: 048
     Dates: start: 20130330
  7. REBAMIPIDE / REBAMIPIDE [Concomitant]
     Indication: GASTRODUODENAL ULCER
     Dosage: 200 MG
     Route: 048
     Dates: start: 20120308
  8. ZOLPIDEM TARTRATE OD / ZOLPIDEM TARTRATE [Concomitant]
     Indication: INSOMNIA
     Dosage: 10 MG
     Route: 048

REACTIONS (3)
  - Rhabdomyolysis [Recovered/Resolved]
  - Fall [Unknown]
  - Dizziness [Unknown]
